FAERS Safety Report 16022125 (Version 1)
Quarter: 2019Q1

REPORT INFORMATION
  Report Type: Spontaneous
  Country: US (occurrence: US)
  Receive Date: 20190204
  Receipt Date: 20190204
  Transmission Date: 20190418
  Serious: No
  Sender: FDA-Public Use
  Company Number: None

PATIENT
  Age: 47 Year

DRUGS (1)
  1. MERCAPTOPURINE TAB [Suspect]
     Active Substance: MERCAPTOPURINE

REACTIONS (1)
  - Off label use [None]

NARRATIVE: CASE EVENT DATE: 20190204
